FAERS Safety Report 25714471 (Version 1)
Quarter: 2025Q3

REPORT INFORMATION
  Report Type: Spontaneous
  Country: US (occurrence: US)
  Receive Date: 20250822
  Receipt Date: 20250822
  Transmission Date: 20251021
  Serious: No
  Sender: STRIDES
  Company Number: None

PATIENT
  Age: 10 Year
  Sex: Male

DRUGS (2)
  1. GABAPENTIN [Suspect]
     Active Substance: GABAPENTIN
     Indication: Restless legs syndrome
     Route: 065
  2. IRON [Concomitant]
     Active Substance: IRON
     Indication: Restless legs syndrome
     Route: 048

REACTIONS (3)
  - Restless leg augmentation syndrome [Unknown]
  - Condition aggravated [Unknown]
  - Off label use [Unknown]
